FAERS Safety Report 4348057-0 (Version None)
Quarter: 2004Q1

REPORT INFORMATION
  Report Type: 
  Country: None (occurrence: None)
  Receive Date: 20040325
  Receipt Date: 20040213
  Transmission Date: 20041129
  Serious: No
  Sender: FDA-Public Use
  Company Number: USA040259241

PATIENT
  Age: 72 Year
  Sex: Female
  Weight: 66 kg

DRUGS (10)
  1. FORTEO [Suspect]
     Indication: OSTEOPOROSIS
     Dosage: 20 UG/DAY
     Dates: start: 20030728
  2. CALCIUM PLUS D [Concomitant]
  3. NICARDIPINE HCL [Concomitant]
  4. ISOSORBIDE [Concomitant]
  5. ESTROPIPATE [Concomitant]
  6. MEDROXYPROGESTERONE ACETATE [Concomitant]
  7. PLAQUENIL [Concomitant]
  8. PROTONIX [Concomitant]
  9. METHOTREXATE [Concomitant]
  10. BABY ASPIRIN (ACETYLSALICYCLIC ACID) [Concomitant]

REACTIONS (7)
  - ASTHENIA [None]
  - BLOOD URINE [None]
  - DEPRESSION [None]
  - DRY THROAT [None]
  - INFLUENZA [None]
  - MUSCULAR WEAKNESS [None]
  - VOMITING [None]
